FAERS Safety Report 8257513-4 (Version None)
Quarter: 2012Q1

REPORT INFORMATION
  Report Type: 
  Country: None (occurrence: None)
  Receive Date: 20120330
  Receipt Date: 20120330
  Transmission Date: 20120608
  Serious: Yes (Disabling, Other)
  Sender: FDA-Public Use
  Company Number: None

PATIENT
  Age: 53 Year
  Sex: Male
  Weight: 65.7716 kg

DRUGS (1)
  1. METHADONE HCL [Suspect]
     Indication: PAIN MANAGEMENT
     Dosage: ONE TAB TWICE DAILY
     Dates: start: 20110501, end: 20111101

REACTIONS (3)
  - HYPOAESTHESIA [None]
  - ADVERSE EVENT [None]
  - ROAD TRAFFIC ACCIDENT [None]
